FAERS Safety Report 19847151 (Version 1)
Quarter: 2021Q3

REPORT INFORMATION
  Report Type: Report from Study
  Country: GB (occurrence: GB)
  Receive Date: 20210917
  Receipt Date: 20210917
  Transmission Date: 20211014
  Serious: Yes (Hospitalization)
  Sender: FDA-Public Use
  Company Number: GB-REGENERON PHARMACEUTICALS, INC.-2021-86172

PATIENT

DRUGS (6)
  1. BLINDED PLACEBO (ISA101B) [Suspect]
     Active Substance: INVESTIGATIONAL PRODUCT
     Indication: PRODUCT USED FOR UNKNOWN INDICATION
     Dosage: 100 MICROGRAM
     Route: 058
     Dates: start: 20210716, end: 20210716
  2. BLINDED ISA101B [Suspect]
     Active Substance: INVESTIGATIONAL PRODUCT
     Indication: PRODUCT USED FOR UNKNOWN INDICATION
     Dosage: 100 MICROGRAM
     Route: 058
     Dates: start: 20210716, end: 20210716
  3. CEMIPLIMAB [Suspect]
     Active Substance: CEMIPLIMAB
     Dosage: 350 MILLIGRAM, 3 WEEKLY
     Route: 042
     Dates: start: 20210903, end: 20210903
  4. BLINDED PLACEBO (ISA101B) [Suspect]
     Active Substance: INVESTIGATIONAL PRODUCT
     Dosage: 100 MICROGRAM
     Route: 058
     Dates: start: 20210903, end: 20210903
  5. CEMIPLIMAB [Suspect]
     Active Substance: CEMIPLIMAB
     Indication: PRODUCT USED FOR UNKNOWN INDICATION
     Dosage: 350 MILLIGRAM, 3 WEEKLY
     Route: 042
     Dates: start: 20210721, end: 20210721
  6. BLINDED ISA101B [Suspect]
     Active Substance: INVESTIGATIONAL PRODUCT
     Dosage: 100 MICROGRAM
     Route: 058
     Dates: start: 20210903, end: 20210903

REACTIONS (1)
  - Pneumonia aspiration [Not Recovered/Not Resolved]

NARRATIVE: CASE EVENT DATE: 20210903
